FAERS Safety Report 4426621-8 (Version None)
Quarter: 2004Q3

REPORT INFORMATION
  Report Type: 
  Country: None (occurrence: None)
  Receive Date: 20040812
  Receipt Date: 20040812
  Transmission Date: 20050211
  Serious: Yes (Other)
  Sender: FDA-Public Use
  Company Number: None

PATIENT
  Age: 60 Year
  Sex: Female
  Weight: 77.1115 kg

DRUGS (6)
  1. PROPRANOLOL [Suspect]
     Indication: AKATHISIA
     Dosage: ORAL
     Route: 048
     Dates: start: 20030813
  2. VALIUM [Concomitant]
  3. COGENTIN [Concomitant]
  4. SKELAZINE [Concomitant]
  5. TRAZODONE HCL [Concomitant]
  6. AMBIEN [Concomitant]

REACTIONS (1)
  - SUICIDAL IDEATION [None]
